FAERS Safety Report 15592929 (Version 6)
Quarter: 2019Q2

REPORT INFORMATION
  Report Type: Spontaneous
  Country: IT (occurrence: IT)
  Receive Date: 20181106
  Receipt Date: 20190627
  Transmission Date: 20190711
  Serious: Yes (Death, Life-Threatening, Hospitalization)
  Sender: FDA-Public Use
  Company Number: PHHY2018IT147753

PATIENT
  Age: 69 Year
  Sex: Male

DRUGS (4)
  1. CICLOSPORIN [Suspect]
     Active Substance: CYCLOSPORINE
     Indication: ALLOGENIC STEM CELL TRANSPLANTATION
     Dosage: 3 MG/KG, BID EV FROM DAY 0
     Route: 065
     Dates: start: 2017
  2. CICLOSPORIN [Suspect]
     Active Substance: CYCLOSPORINE
     Indication: IMMUNOSUPPRESSANT DRUG THERAPY
  3. MYCOPHENOLATE [Suspect]
     Active Substance: MYCOPHENOLIC ACID
     Indication: IMMUNOSUPPRESSANT DRUG THERAPY
  4. MYCOPHENOLATE [Suspect]
     Active Substance: MYCOPHENOLIC ACID
     Indication: ALLOGENIC STEM CELL TRANSPLANTATION
     Route: 065

REACTIONS (11)
  - Staphylococcal infection [Unknown]
  - Multiple organ dysfunction syndrome [Fatal]
  - Pyrexia [Recovered/Resolved]
  - Renal impairment [Fatal]
  - Enterococcal infection [Unknown]
  - Respiratory failure [Fatal]
  - Septic shock [Fatal]
  - Neutropenia [Not Recovered/Not Resolved]
  - Haemorrhage [Fatal]
  - Klebsiella infection [Unknown]
  - Product use in unapproved indication [Unknown]

NARRATIVE: CASE EVENT DATE: 2017
